FAERS Safety Report 6502344-6 (Version None)
Quarter: 2009Q4

REPORT INFORMATION
  Report Type: 
  Country: None (occurrence: None)
  Receive Date: 20091216
  Receipt Date: 20091123
  Transmission Date: 20100525
  Serious: No
  Sender: FDA-Public Use
  Company Number: US-ABBOTT-09P-163-0611067-00

PATIENT
  Sex: Male

DRUGS (2)
  1. TRILIPIX [Suspect]
     Indication: LOW DENSITY LIPOPROTEIN INCREASED
     Dates: start: 20091114
  2. TRILIPIX [Suspect]
     Indication: HIGH DENSITY LIPOPROTEIN DECREASED

REACTIONS (4)
  - DIZZINESS [None]
  - FATIGUE [None]
  - HEADACHE [None]
  - VOMITING [None]
